FAERS Safety Report 7525996-0 (Version None)
Quarter: 2011Q2

REPORT INFORMATION
  Report Type: 
  Country: None (occurrence: None)
  Receive Date: 20110606
  Receipt Date: 20110525
  Transmission Date: 20111010
  Serious: Yes (Hospitalization)
  Sender: FDA-Public Use
  Company Number: US-GENZYME-CAMP-1000705

PATIENT
  Sex: Female
  Weight: 117.91 kg

DRUGS (10)
  1. AMBIEN CR [Concomitant]
     Indication: INSOMNIA
     Dosage: 12.5 MG, PRN
     Route: 048
     Dates: start: 20090817
  2. TRILEPTAL [Concomitant]
     Indication: NEURALGIA
     Dosage: 150 MG, BID
     Route: 048
     Dates: start: 20080101, end: 20100730
  3. METHYLPREDNISOLONE [Concomitant]
     Dosage: 1.0 G, QDX3
     Route: 042
     Dates: start: 20090817, end: 20090819
  4. FIORICET [Concomitant]
     Indication: HEADACHE
  5. FIORINAL [Concomitant]
     Indication: HEADACHE
     Dosage: 2 OTHER, PRN
     Route: 048
     Dates: start: 20100615
  6. CAMPATH [Suspect]
     Dosage: 12 MG, QDX3
     Route: 042
     Dates: start: 20090817, end: 20090819
  7. WELLBUTRIN XL [Concomitant]
     Indication: DEPRESSION
     Dosage: 300 MG, QD
     Route: 048
     Dates: start: 20070701, end: 20100801
  8. CAMPATH [Suspect]
     Indication: MULTIPLE SCLEROSIS
     Dosage: 12 MG, QDX5
     Route: 042
     Dates: start: 20080818, end: 20080822
  9. METHYLPREDNISOLONE [Concomitant]
     Indication: MULTIPLE SCLEROSIS
     Dosage: 1.0 G, QDX3
     Route: 042
     Dates: start: 20080818, end: 20080820
  10. LEXAPRO [Concomitant]
     Indication: PRODUCT USED FOR UNKNOWN INDICATION
     Dosage: 20 MG, QD
     Route: 048
     Dates: start: 20090409

REACTIONS (1)
  - PYELONEPHRITIS [None]
